FAERS Safety Report 4345145-X (Version None)
Quarter: 2004Q2

REPORT INFORMATION
  Report Type: 
  Country: None (occurrence: None)
  Receive Date: 20040421
  Receipt Date: 20040421
  Transmission Date: 20050107
  Serious: Yes (Hospitalization)
  Sender: FDA-Public Use
  Company Number: None

PATIENT
  Sex: Female

DRUGS (1)
  1. TICLODIPINE [Suspect]
     Indication: INTERMITTENT CLAUDICATION
     Dosage: 250MG PO Q12H
     Route: 048
     Dates: end: 20040409

REACTIONS (1)
  - JAUNDICE CHOLESTATIC [None]
